FAERS Safety Report 24191203 (Version 4)
Quarter: 2024Q4

REPORT INFORMATION
  Report Type: Spontaneous
  Country: FR (occurrence: FR)
  Receive Date: 20240808
  Receipt Date: 20241121
  Transmission Date: 20250115
  Serious: Yes (Hospitalization, Other)
  Sender: TEVA
  Company Number: FR-TEVA-VS-3230639

PATIENT
  Age: 38 Year
  Sex: Male

DRUGS (13)
  1. DOXYCYCLINE [Suspect]
     Active Substance: DOXYCYCLINE
     Indication: Mycoplasma infection
     Dosage: DOXYCYCLINE TEVA
     Route: 065
     Dates: start: 20230920, end: 20230925
  2. ECONAZOLE [Suspect]
     Active Substance: ECONAZOLE
     Indication: Penile erythema
     Dosage: ECONAZOLE TEVA SANTE
     Route: 065
     Dates: start: 20230921
  3. DOXYCYCLINE [Suspect]
     Active Substance: DOXYCYCLINE
     Indication: Mycoplasma infection
     Dosage: DOXYCYCLINE ARROW?1 TABLET IN THE MORNING AND IN THE EVENING FOR 7 DAYS
     Route: 065
     Dates: start: 20230912
  4. MOXIFLOXACIN HYDROCHLORIDE [Suspect]
     Active Substance: MOXIFLOXACIN HYDROCHLORIDE
     Indication: Mycoplasma infection
     Dosage: 1 TABLET PER DAY FOR 7 DAYS
     Route: 065
     Dates: start: 20230920
  5. AZITHROMYCIN [Concomitant]
     Active Substance: AZITHROMYCIN
     Indication: Paraesthesia
     Dosage: SECOND TABLET OF AZITHROMYCIN HEC 500 MG TO BE TAKEN THE FOLLOWING DAY?250 MG 2 TABLETS DURING 1 ...
     Route: 065
     Dates: start: 20230723
  6. CEFTRIAXONE [Concomitant]
     Active Substance: CEFTRIAXONE
     Indication: Paraesthesia
     Route: 065
     Dates: start: 20230723
  7. EMTRICITABINE\TENOFOVIR DISOPROXIL [Concomitant]
     Active Substance: EMTRICITABINE\TENOFOVIR DISOPROXIL
     Indication: Product used for unknown indication
     Dosage: TEVA
     Route: 065
  8. CHOLECALCIFEROL [Concomitant]
     Active Substance: CHOLECALCIFEROL
     Indication: Product used for unknown indication
     Dosage: ZENTIVA NOT TEVA PRODUCT, AT THE DOSAGE OF 1 VIAL EVERY 3 MONTHS
     Route: 065
  9. MOXIFLOXACIN [Suspect]
     Active Substance: MOXIFLOXACIN
     Indication: Product used for unknown indication
     Dosage: MOXIFLOXACINE VIATRIS(NOT TEVA PRODUCT)
     Route: 065
     Dates: start: 20230920
  10. DESLORATADINE [Concomitant]
     Active Substance: DESLORATADINE
  11. MUPIROCIN [Concomitant]
     Active Substance: MUPIROCIN
     Indication: Product used for unknown indication
  12. DERMOVAL [Concomitant]
     Indication: Product used for unknown indication
     Dates: start: 20231102
  13. CICAPLAST [Concomitant]
     Indication: Product used for unknown indication
     Route: 065
     Dates: start: 20231102

REACTIONS (3)
  - Balanoposthitis [Not Recovered/Not Resolved]
  - Fixed eruption [Not Recovered/Not Resolved]
  - Drug ineffective [Unknown]

NARRATIVE: CASE EVENT DATE: 20230101
